FAERS Safety Report 12775390 (Version 1)
Quarter: 2016Q3

REPORT INFORMATION
  Report Type: Spontaneous
  Country: US (occurrence: US)
  Receive Date: 20160922
  Receipt Date: 20160922
  Transmission Date: 20161109
  Serious: Yes (Other)
  Sender: FDA-Public Use
  Company Number: None

PATIENT
  Age: 58 Year
  Sex: Female

DRUGS (2)
  1. HYDROCODONE 5MG/325 (2172) [Suspect]
     Active Substance: ACETAMINOPHEN\HYDROCODONE BITARTRATE
     Indication: BACK DISORDER
     Route: 048
     Dates: start: 20160730, end: 20160831
  2. HYDROCODONE 5MG/325 (2172) [Suspect]
     Active Substance: ACETAMINOPHEN\HYDROCODONE BITARTRATE
     Indication: SPINAL DISORDER
     Route: 048
     Dates: start: 20160730, end: 20160831

REACTIONS (9)
  - Headache [None]
  - Pain [None]
  - Unevaluable event [None]
  - Product substitution issue [None]
  - Feeling abnormal [None]
  - Drug ineffective [None]
  - Pain in extremity [None]
  - Emotional disorder [None]
  - Withdrawal syndrome [None]

NARRATIVE: CASE EVENT DATE: 20160730
